FAERS Safety Report 5724476-2 (Version None)
Quarter: 2008Q2

REPORT INFORMATION
  Report Type: 
  Country: None (occurrence: None)
  Receive Date: 20080429
  Receipt Date: 20080414
  Transmission Date: 20081010
  Serious: Yes (Life-Threatening)
  Sender: FDA-Public Use
  Company Number: E2020-02464-SPO-JP

PATIENT
  Age: 92 Year
  Sex: Female
  Weight: 43.4 kg

DRUGS (17)
  1. ARICEPT [Suspect]
     Indication: DEMENTIA ALZHEIMER'S TYPE
     Dosage: 3 MG, 1 IN 1 D, ORAL, 5 MG, 1 IN 1 D, ORAL
     Route: 048
     Dates: start: 20071226, end: 20080103
  2. ARICEPT [Suspect]
     Indication: DEMENTIA ALZHEIMER'S TYPE
     Dosage: 3 MG, 1 IN 1 D, ORAL, 5 MG, 1 IN 1 D, ORAL
     Route: 048
     Dates: start: 20080104, end: 20080125
  3. VERAPAMIL HYDROCHLORIDE [Suspect]
     Indication: MYOCARDIAL ISCHAEMIA
     Dosage: 3 DOSAGE FORMS, 1 IN 1 D, ORAL
     Route: 048
     Dates: start: 20070502, end: 20080125
  4. VERAPAMIL HYDROCHLORIDE [Suspect]
     Indication: SUPRAVENTRICULAR EXTRASYSTOLES
     Dosage: 3 DOSAGE FORMS, 1 IN 1 D, ORAL
     Route: 048
     Dates: start: 20070502, end: 20080125
  5. VERAPAMIL HYDROCHLORIDE [Suspect]
     Indication: VENTRICULAR EXTRASYSTOLES
     Dosage: 3 DOSAGE FORMS, 1 IN 1 D, ORAL
     Route: 048
     Dates: start: 20070502, end: 20080125
  6. LASIX [Concomitant]
  7. AMLODIPINE BESYLATE [Concomitant]
  8. ALLOPURINOL [Concomitant]
  9. JUVELA (TOCOPHEROL) [Concomitant]
  10. VITAMEDIN (BENFOTIAMINE) [Concomitant]
  11. ASPARA K (ASPARTATE POTASSIUM) [Concomitant]
  12. MEXITIL [Concomitant]
  13. MERISLON (BETHAHISTINE HYDROCHLORIDE) [Concomitant]
  14. GASMOTIN (MOSAPRIDE CITRATE) [Concomitant]
  15. CEROCRAL (IFENPRODIL TARTRATE) [Concomitant]
  16. LANSOPRAZOLE [Concomitant]
  17. BUP-4 (PROPIVERINE HYDROCHLORIDE) [Concomitant]

REACTIONS (6)
  - ATRIOVENTRICULAR BLOCK COMPLETE [None]
  - CARDIAC ARREST [None]
  - ELECTROCARDIOGRAM QT PROLONGED [None]
  - SYNCOPE [None]
  - TORSADE DE POINTES [None]
  - VENTRICULAR FLUTTER [None]
